FAERS Safety Report 9249501 (Version 1)
Quarter: 2013Q2

REPORT INFORMATION
  Report Type: Spontaneous
  Country: GB (occurrence: GB)
  Receive Date: 20130423
  Receipt Date: 20130423
  Transmission Date: 20140414
  Serious: Yes (Other)
  Sender: FDA-Public Use
  Company Number: GB-GLAXOSMITHKLINE-B0886052A

PATIENT
  Age: 44 Year
  Sex: Female

DRUGS (7)
  1. ONDANSETRON [Suspect]
     Indication: GENERAL ANAESTHESIA
     Dosage: 4MG PER DAY
     Route: 065
  2. PROPOFOL [Suspect]
     Indication: GENERAL ANAESTHESIA
     Dosage: 200MG PER DAY
     Route: 065
  3. FENTANYL [Concomitant]
     Dosage: 100MCG PER DAY
  4. ATRACURIUM [Concomitant]
     Dosage: 30MG PER DAY
  5. DEXAMETHASONE [Concomitant]
     Dosage: 8MG PER DAY
  6. PARACETAMOL [Concomitant]
     Dosage: 1G PER DAY
  7. DICLOFENAC [Concomitant]
     Dosage: 75MG PER DAY

REACTIONS (11)
  - Dystonia [Recovered/Resolved]
  - Delayed recovery from anaesthesia [Unknown]
  - Muscular weakness [Unknown]
  - Muscle twitching [Unknown]
  - Chills [Unknown]
  - Eye disorder [Unknown]
  - Aphasia [Unknown]
  - Gaze palsy [Unknown]
  - Cogwheel rigidity [Unknown]
  - Tremor [Unknown]
  - Oculogyric crisis [Unknown]
